FAERS Safety Report 8772632 (Version 2)
Quarter: 2012Q4

REPORT INFORMATION
  Report Type: 
  Country: BR (occurrence: BR)
  Receive Date: 20120905
  Receipt Date: 20120910
  Transmission Date: 20130627
  Serious: Yes (Hospitalization, Other)
  Sender: FDA-Public Use
  Company Number: BR-AMGEN-BRASP2012055619

PATIENT
  Age: 62 Year
  Sex: Female
  Weight: 65 kg

DRUGS (2)
  1. MIMPARA [Suspect]
     Indication: PARATHYROID DISORDER
     Dosage: 180 mg, qd
     Route: 048
     Dates: start: 20120612
  2. MIMPARA [Suspect]
     Dosage: UNK

REACTIONS (3)
  - Urinary tract infection [Recovering/Resolving]
  - Dysuria [Unknown]
  - Blood parathyroid hormone increased [Recovering/Resolving]
